FAERS Safety Report 10194522 (Version 1)
Quarter: 2014Q2

REPORT INFORMATION
  Report Type: Spontaneous
  Country: US (occurrence: US)
  Receive Date: 20140526
  Receipt Date: 20140526
  Transmission Date: 20141212
  Serious: No
  Sender: FDA-Public Use
  Company Number: US-BIOGENIDEC-2014BI043448

PATIENT
  Age: 75 Year
  Sex: Male

DRUGS (4)
  1. TECFIDERA [Suspect]
     Indication: MULTIPLE SCLEROSIS
     Route: 048
     Dates: start: 20140214, end: 2014
  2. SYNTHROID [Concomitant]
  3. ASPIRIN ADULT LOW STRENGTH [Concomitant]
  4. AMPYRA [Concomitant]

REACTIONS (3)
  - Urticaria [Unknown]
  - Oedema [Unknown]
  - Pruritus [Unknown]
